FAERS Safety Report 23723965 (Version 1)
Quarter: 2024Q2

REPORT INFORMATION
  Report Type: Spontaneous
  Country: US (occurrence: US)
  Receive Date: 20240409
  Receipt Date: 20240409
  Transmission Date: 20240717
  Serious: Yes (Other)
  Sender: FDA-Public Use
  Company Number: US-GE HEALTHCARE-2024CSU003484

PATIENT
  Age: 26 Year
  Sex: Female

DRUGS (1)
  1. OMNIPAQUE [Suspect]
     Active Substance: IOHEXOL
     Indication: Diagnostic procedure
     Dosage: 100 ML, TOTAL
     Route: 042

REACTIONS (3)
  - Sneezing [Unknown]
  - Cough [Unknown]
  - Pruritus [Unknown]

NARRATIVE: CASE EVENT DATE: 20240403
